FAERS Safety Report 7413290-8 (Version None)
Quarter: 2011Q2

REPORT INFORMATION
  Report Type: 
  Country: None (occurrence: None)
  Receive Date: 20110413
  Receipt Date: 20110405
  Transmission Date: 20111010
  Serious: Yes (Hospitalization)
  Sender: FDA-Public Use
  Company Number: FR-PFIZER INC-2011074759

PATIENT
  Sex: Female

DRUGS (3)
  1. SERESTA [Concomitant]
     Dosage: 50 MG, 1X/DAY
     Dates: start: 20100428
  2. EFFEXOR XR [Suspect]
     Dosage: 37.5 MG, 2X/DAY
     Route: 048
     Dates: start: 20100330, end: 20110106
  3. ZOLPIDEM [Concomitant]
     Dosage: 10 MG, 1X/DAY
     Route: 048
     Dates: start: 20100428

REACTIONS (2)
  - NORMOCHROMIC NORMOCYTIC ANAEMIA [None]
  - NEUTROPENIA [None]
